FAERS Safety Report 21554573 (Version 4)
Quarter: 2022Q4

REPORT INFORMATION
  Report Type: Spontaneous
  Country: US (occurrence: US)
  Receive Date: 20221104
  Receipt Date: 20221227
  Transmission Date: 20230113
  Serious: Yes (Other)
  Sender: FDA-Public Use
  Company Number: US-PFIZER INC-202201274853

PATIENT
  Age: 68 Year
  Sex: Female

DRUGS (1)
  1. QUINAPRIL [Suspect]
     Active Substance: QUINAPRIL
     Dosage: UNK

REACTIONS (4)
  - Cerebrovascular accident [Unknown]
  - Drug ineffective [Unknown]
  - Vertigo [Unknown]
  - Urinary tract infection [Unknown]
